FAERS Safety Report 8811889 (Version 2)
Quarter: 2012Q4

REPORT INFORMATION
  Report Type: 
  Country: JP (occurrence: JP)
  Receive Date: 20120927
  Receipt Date: 20121005
  Transmission Date: 20130627
  Serious: Yes (Hospitalization)
  Sender: FDA-Public Use
  Company Number: JP-BAXTER-2012BAX017981

PATIENT
  Age: 60 Year
  Sex: Male

DRUGS (3)
  1. DIANEAL PD-2 WITH DEXTROSE [Suspect]
     Indication: IGA NEPHROPATHY
     Route: 033
  2. DIANEAL PD-2 WITH DEXTROSE [Suspect]
     Indication: CARDIAC FAILURE CONGESTIVE
     Route: 033
  3. EXTRANEAL [Suspect]
     Indication: IGA NEPHROPATHY
     Route: 033

REACTIONS (1)
  - Cardiac failure congestive [Recovering/Resolving]
